FAERS Safety Report 10886158 (Version 1)
Quarter: 2015Q1

REPORT INFORMATION
  Report Type: Spontaneous
  Country: US (occurrence: None)
  Receive Date: 20150227
  Receipt Date: 20150227
  Transmission Date: 20150721
  Serious: Yes (Other)
  Sender: FDA-Public Use
  Company Number: None

PATIENT
  Age: 67 Year
  Sex: Female

DRUGS (2)
  1. LIDOCAINE. [Suspect]
     Active Substance: LIDOCAINE
     Indication: OSTEOARTHRITIS
     Dosage: 6 ML ONCE INTRA-ARTICULAR KNEE
     Route: 014
     Dates: start: 20150217
  2. DEPO-MEDROL [Suspect]
     Active Substance: METHYLPREDNISOLONE ACETATE
     Indication: OSTEOARTHRITIS
     Dosage: 1 ML ONCE INTRA-ARTICULAR KNEE
     Route: 014
     Dates: start: 20150217

REACTIONS (3)
  - Injection site erythema [None]
  - Injection site warmth [None]
  - Injection site swelling [None]

NARRATIVE: CASE EVENT DATE: 20150217
